FAERS Safety Report 13871342 (Version 2)
Quarter: 2017Q4

REPORT INFORMATION
  Report Type: Report from Study
  Country: MX (occurrence: MX)
  Receive Date: 20170816
  Receipt Date: 20171208
  Transmission Date: 20180320
  Serious: Yes (Hospitalization, Other)
  Sender: FDA-Public Use
  Company Number: MX-BAYER-2017-147197

PATIENT
  Age: 74 Year
  Sex: Female

DRUGS (7)
  1. URSODEOXYCHOLIC ACID [Concomitant]
     Active Substance: URSODIOL
     Dosage: UNK, IN THE MORNING AND 2 AT NIGHT
  2. OMEPRAZOLE. [Concomitant]
     Active Substance: OMEPRAZOLE
     Dosage: UNK, Q4HR, IN THE MORNING
  3. AMIKACIN [Concomitant]
     Active Substance: AMIKACIN
  4. LACTULOSE. [Concomitant]
     Active Substance: LACTULOSE
  5. NEXAVAR [Suspect]
     Active Substance: SORAFENIB
     Indication: HEPATOCELLULAR CARCINOMA
     Dosage: 400 MG, BID
     Dates: start: 20170719, end: 20171028
  6. NEXAVAR [Suspect]
     Active Substance: SORAFENIB
     Indication: HEPATOCELLULAR CARCINOMA
     Dosage: UNK
     Dates: start: 2017, end: 20171115
  7. METRONIDAZOLE. [Concomitant]
     Active Substance: METRONIDAZOLE

REACTIONS (14)
  - Blood albumin decreased [None]
  - Urinary tract infection [None]
  - Rash [Unknown]
  - Pyrexia [Unknown]
  - Amnesia [Unknown]
  - Blood bilirubin increased [None]
  - Encephalopathy [None]
  - Epistaxis [None]
  - Urinary tract infection [None]
  - Peripheral swelling [None]
  - Tongue discomfort [Unknown]
  - Blood pressure systolic increased [Unknown]
  - Pruritus [Not Recovered/Not Resolved]
  - Dehydration [None]

NARRATIVE: CASE EVENT DATE: 20170719
